FAERS Safety Report 7148091-1 (Version None)
Quarter: 2010Q4

REPORT INFORMATION
  Report Type: 
  Country: None (occurrence: None)
  Receive Date: 20101209
  Receipt Date: 20100511
  Transmission Date: 20110411
  Serious: No
  Sender: FDA-Public Use
  Company Number: US-PFIZER INC-US-WYE-H14092410

PATIENT
  Age: 85 Year
  Sex: Male
  Weight: 71.837 kg

DRUGS (1)
  1. TORISEL [Suspect]
     Indication: RENAL CELL CARCINOMA
     Dosage: UNK
     Route: 042
     Dates: start: 20091029, end: 20100304

REACTIONS (5)
  - ABDOMINAL PAIN [None]
  - DECREASED APPETITE [None]
  - DISEASE PROGRESSION [None]
  - RENAL CELL CARCINOMA [None]
  - WEIGHT DECREASED [None]
